FAERS Safety Report 8232245-7 (Version None)
Quarter: 2012Q1

REPORT INFORMATION
  Report Type: 
  Country: None (occurrence: None)
  Receive Date: 20120323
  Receipt Date: 20120309
  Transmission Date: 20120608
  Serious: Yes (Death)
  Sender: FDA-Public Use
  Company Number: HU-ACTELION-A-CH2012-61869

PATIENT
  Sex: Male

DRUGS (5)
  1. SPIRONOLACTONE [Concomitant]
  2. POTASSIUM [Concomitant]
  3. TRACLEER [Suspect]
     Indication: PULMONARY ARTERIAL HYPERTENSION
     Dosage: UNK
     Route: 048
     Dates: end: 20120122
  4. FUROSEMIDE [Concomitant]
  5. BISOPROLOL FUMARATE [Concomitant]

REACTIONS (4)
  - ARTERY DISSECTION [None]
  - PULMONARY ARTERY ANEURYSM [None]
  - CHEST PAIN [None]
  - PULMONARY ARTERY THROMBOSIS [None]
